FAERS Safety Report 24215936 (Version 1)
Quarter: 2024Q3

REPORT INFORMATION
  Report Type: Spontaneous
  Country: US (occurrence: None)
  Receive Date: 20240816
  Receipt Date: 20240816
  Transmission Date: 20241017
  Serious: No
  Sender: OREXO
  Company Number: US-ARIS GLOBAL-ORE202402-000005

PATIENT
  Sex: Female
  Weight: 88.4 kg

DRUGS (1)
  1. ZUBSOLV [Suspect]
     Active Substance: BUPRENORPHINE HYDROCHLORIDE\NALOXONE HYDROCHLORIDE
     Indication: Pain
     Route: 048

REACTIONS (4)
  - Yawning [Recovering/Resolving]
  - Withdrawal syndrome [Recovering/Resolving]
  - Product blister packaging issue [Unknown]
  - Product use in unapproved indication [Unknown]
